FAERS Safety Report 10451192 (Version 2)
Quarter: 2014Q3

REPORT INFORMATION
  Report Type: Spontaneous
  Country: US (occurrence: US)
  Receive Date: 20140912
  Receipt Date: 20140912
  Transmission Date: 20150326
  Serious: No
  Sender: FDA-Public Use
  Company Number: US-GALDERMA-US14002647

PATIENT
  Age: 74 Year
  Sex: Female
  Weight: 70 kg

DRUGS (19)
  1. CLINQUE REDNESS SOLUTIONS CREAM [Concomitant]
     Indication: ERYTHEMA
     Route: 061
     Dates: start: 2013
  2. METOPROLOL [Concomitant]
     Active Substance: METOPROLOL
     Route: 048
     Dates: start: 2009
  3. MULTIVITAMIN [Concomitant]
     Active Substance: VITAMINS
     Route: 048
  4. FLUTICASONE NASAL SPRAY [Concomitant]
     Active Substance: FLUTICASONE\FLUTICASONE PROPIONATE
     Dosage: 0.05 MG/INHALATION 1 SPRAY TWICE DAILY
     Route: 045
  5. LUTEIN [Concomitant]
     Active Substance: LUTEIN
     Route: 048
  6. ELDERBERRY [Concomitant]
     Dosage: 40 DROPS
     Route: 048
  7. TUMERIC [Concomitant]
     Route: 048
  8. VITAMIN D WITH MINERALS [Concomitant]
     Route: 048
  9. FLONASE [Concomitant]
     Active Substance: FLUTICASONE PROPIONATE
     Dosage: 50 MCG/INHALTION 2 SPRAYS TWICE DAILY
     Route: 045
  10. VITAMIN C [Concomitant]
     Active Substance: ASCORBIC ACID
     Dosage: 1000 MG
     Route: 048
  11. CYCLOBENZAPRINE [Concomitant]
     Active Substance: CYCLOBENZAPRINE
     Indication: MUSCLE SPASMS
     Dosage: 10 MG
     Route: 048
  12. MILK THISTLE [Concomitant]
     Active Substance: MILK THISTLE
     Dosage: 40 DROPS
     Route: 048
  13. COENZYME Q10 [Concomitant]
     Active Substance: UBIDECARENONE
     Dosage: 100 MG
     Route: 048
  14. MIRVASO [Suspect]
     Active Substance: BRIMONIDINE TARTRATE
     Indication: ROSACEA
     Dosage: 0.33%
     Route: 061
     Dates: start: 20140707, end: 20140711
  15. TYLENOL [Concomitant]
     Active Substance: ACETAMINOPHEN
     Indication: PAIN
     Dosage: 1000 MG
     Route: 048
  16. GINGER. [Concomitant]
     Active Substance: GINGER
     Route: 048
  17. NEOSPORIN OINMENT [Concomitant]
     Route: 061
     Dates: start: 201406
  18. TRIPHALA [Concomitant]
  19. GRAPE SEED OIL [Concomitant]

REACTIONS (3)
  - Off label use [Recovered/Resolved]
  - Erythema [Recovered/Resolved]
  - Flushing [Recovered/Resolved]

NARRATIVE: CASE EVENT DATE: 20140707
